FAERS Safety Report 8847001 (Version 2)
Quarter: 2012Q4

REPORT INFORMATION
  Report Type: 
  Country: DE (occurrence: PH)
  Receive Date: 20121018
  Receipt Date: 20121121
  Transmission Date: 20130627
  Serious: Yes (Death)
  Sender: FDA-Public Use
  Company Number: PH-FRI-1000039513

PATIENT
  Age: 73 Year
  Sex: Male

DRUGS (4)
  1. ROFLUMILAST [Suspect]
     Indication: CHRONIC OBSTRUCTIVE PULMONARY DISEASE
     Dates: start: 20120910, end: 20120923
  2. SERETIDE [Concomitant]
  3. COMBIVENT [Concomitant]
  4. NUELIN [Concomitant]

REACTIONS (3)
  - Pneumonia aspiration [Fatal]
  - Pneumothorax [Fatal]
  - Pneumonia [Fatal]
